FAERS Safety Report 20112596 (Version 2)
Quarter: 2021Q4

REPORT INFORMATION
  Report Type: Report from Study
  Country: CA (occurrence: CA)
  Receive Date: 20211125
  Receipt Date: 20211201
  Transmission Date: 20220304
  Serious: Yes (Death, Other)
  Sender: FDA-Public Use
  Company Number: CA-NOVARTISPH-NVSC2021CA268313

PATIENT
  Age: 3 Year
  Sex: Male
  Weight: 16.8 kg

DRUGS (2)
  1. TRAMETINIB [Suspect]
     Active Substance: TRAMETINIB
     Indication: BRAF V600E mutation positive
     Dosage: 0.42 G, QD
     Route: 048
     Dates: start: 20211021
  2. DABRAFENIB [Suspect]
     Active Substance: DABRAFENIB
     Indication: BRAF V600E mutation positive
     Dosage: 10 MG
     Route: 048
     Dates: start: 20211021

REACTIONS (5)
  - Neoplasm progression [Fatal]
  - Hydrocephalus [Fatal]
  - Tonic convulsion [Fatal]
  - Hypophagia [Unknown]
  - Somnolence [Unknown]

NARRATIVE: CASE EVENT DATE: 20211112
